FAERS Safety Report 10343322 (Version 1)
Quarter: 2014Q3

REPORT INFORMATION
  Report Type: Spontaneous
  Country: FR (occurrence: FR)
  Receive Date: 20140725
  Receipt Date: 20140725
  Transmission Date: 20150326
  Serious: Yes (Hospitalization)
  Sender: FDA-Public Use
  Company Number: FR-BRISTOL-MYERS SQUIBB COMPANY-21232566

PATIENT
  Age: 77 Year
  Sex: Male

DRUGS (2)
  1. ERBITUX [Suspect]
     Active Substance: CETUXIMAB
     Dates: start: 201402, end: 20140521
  2. CAMPTO [Suspect]
     Active Substance: IRINOTECAN
     Dates: start: 201402, end: 20140521

REACTIONS (3)
  - Corneal abscess [Recovered/Resolved]
  - Conjunctivitis [Recovered/Resolved]
  - Skin toxicity [Recovered/Resolved]

NARRATIVE: CASE EVENT DATE: 20140521
